FAERS Safety Report 21388878 (Version 3)
Quarter: 2022Q4

REPORT INFORMATION
  Report Type: Spontaneous
  Country: AU (occurrence: AU)
  Receive Date: 20220929
  Receipt Date: 20221021
  Transmission Date: 20230113
  Serious: Yes (Hospitalization, Other)
  Sender: FDA-Public Use
  Company Number: AU-ALEMBIC PHARMACUETICALS LIMITED-2022SCAL000420

PATIENT

DRUGS (23)
  1. LURASIDONE HYDROCHLORIDE [Suspect]
     Active Substance: LURASIDONE HYDROCHLORIDE
     Indication: Product used for unknown indication
     Dosage: 40 MILLIGRAM
     Route: 065
     Dates: start: 2016
  2. LURASIDONE HYDROCHLORIDE [Suspect]
     Active Substance: LURASIDONE HYDROCHLORIDE
     Dosage: UP-TITRATED TO 240MG
     Route: 065
     Dates: start: 201611
  3. LURASIDONE HYDROCHLORIDE [Suspect]
     Active Substance: LURASIDONE HYDROCHLORIDE
     Dosage: 160 MILLIGRAM
     Route: 065
     Dates: start: 201711
  4. VENLAFAXINE [Suspect]
     Active Substance: VENLAFAXINE HYDROCHLORIDE
     Indication: Product used for unknown indication
     Dosage: 450 MILLIGRAM
     Route: 065
     Dates: start: 2013
  5. VENLAFAXINE [Suspect]
     Active Substance: VENLAFAXINE HYDROCHLORIDE
     Dosage: INCREASED TO 600MG
     Route: 065
     Dates: start: 2014
  6. ARIPIPRAZOLE [Suspect]
     Active Substance: ARIPIPRAZOLE
     Indication: Schizophrenia
     Dosage: 1 DOSAGE FORM, QD (30 MG  EVENING)
  7. ASENAPINE [Suspect]
     Active Substance: ASENAPINE
     Indication: Product used for unknown indication
     Dosage: 20 MILLIGRAM
     Route: 065
     Dates: start: 2018, end: 2018
  8. ASENAPINE [Suspect]
     Active Substance: ASENAPINE
     Dosage: 10 MILLIGRAM
     Route: 065
     Dates: end: 2018
  9. ASENAPINE [Suspect]
     Active Substance: ASENAPINE
     Dosage: 10 MILLIGRAM, OD NOCTE
     Route: 065
     Dates: start: 2018, end: 202201
  10. ASENAPINE [Suspect]
     Active Substance: ASENAPINE
     Dosage: INCREASED IN JAN-2022 TO 10MG MANE, 20MG NOCTE
     Route: 065
     Dates: start: 2018, end: 202201
  11. ATORVASTATIN [Suspect]
     Active Substance: ATORVASTATIN
     Indication: Product used for unknown indication
     Dosage: 1 DOSAGE FORM, OD EVENING
     Route: 065
  12. CLOMIPRAMINE [Suspect]
     Active Substance: CLOMIPRAMINE
     Indication: Schizophrenia
     Dosage: UNK
     Route: 065
     Dates: start: 2015
  13. CLOMIPRAMINE [Suspect]
     Active Substance: CLOMIPRAMINE
     Dosage: 75 MILLIGRAM
     Route: 065
     Dates: start: 2016
  14. CLOMIPRAMINE [Suspect]
     Active Substance: CLOMIPRAMINE
     Dosage: INCREASED TO 125MG
     Route: 065
     Dates: start: 201611
  15. METFORMIN [Suspect]
     Active Substance: METFORMIN HYDROCHLORIDE
     Indication: Type 2 diabetes mellitus
     Dosage: 1 DOSAGE FORM, OD EVENING
     Route: 065
  16. OLANZAPINE [Suspect]
     Active Substance: OLANZAPINE
     Indication: Product used for unknown indication
     Dosage: 20 MILLIGRAM
     Route: 065
     Dates: start: 2013
  17. OLANZAPINE [Suspect]
     Active Substance: OLANZAPINE
     Dosage: INCREASED TO 30MG
     Route: 065
     Dates: start: 2014
  18. OLANZAPINE [Suspect]
     Active Substance: OLANZAPINE
     Dosage: REDUCED TO 10MG
     Route: 065
     Dates: start: 2016
  19. RISPERIDONE [Suspect]
     Active Substance: RISPERIDONE
     Indication: Product used for unknown indication
     Dosage: UNK
     Route: 065
  20. GEMFIBROZIL [Suspect]
     Active Substance: GEMFIBROZIL
     Indication: Hypercholesterolaemia
     Dosage: 1 DOSAGE FORM, OD EVENING
     Route: 065
  21. AMISULPRIDE [Concomitant]
     Active Substance: AMISULPRIDE
     Indication: Product used for unknown indication
     Dosage: 100MG NOCTE
     Route: 065
  22. ASCORBIC ACID [Concomitant]
     Active Substance: ASCORBIC ACID
     Indication: Prophylaxis
     Dosage: 1 DOSAGE FORM, OD EVENING
     Route: 065
  23. VITAMINS [Concomitant]
     Active Substance: VITAMINS
     Indication: Prophylaxis
     Dosage: 1 DOSAGE FORM, OD EVENING
     Route: 065

REACTIONS (19)
  - Schizophrenia [Unknown]
  - Major depression [Unknown]
  - Social anxiety disorder [Unknown]
  - Negative thoughts [Unknown]
  - Feelings of worthlessness [Unknown]
  - Drug ineffective [Unknown]
  - Iron deficiency anaemia [Unknown]
  - Cholelithiasis [Unknown]
  - Malaise [Unknown]
  - Cough [Unknown]
  - Weight increased [Unknown]
  - COVID-19 [Unknown]
  - Hallucination, auditory [Recovered/Resolved]
  - Suicidal ideation [Unknown]
  - Headache [Unknown]
  - Liver function test abnormal [Recovering/Resolving]
  - Therapeutic product effect incomplete [Unknown]
  - Product use in unapproved indication [Unknown]
  - Microcytic anaemia [Unknown]

NARRATIVE: CASE EVENT DATE: 20220201
